FAERS Safety Report 7124292-3 (Version None)
Quarter: 2010Q4

REPORT INFORMATION
  Report Type: 
  Country: None (occurrence: None)
  Receive Date: 20101126
  Receipt Date: 20101116
  Transmission Date: 20110411
  Serious: Yes (Other)
  Sender: FDA-Public Use
  Company Number: PHHY2010US73572

PATIENT
  Sex: Female
  Weight: 52.608 kg

DRUGS (1)
  1. RECLAST [Suspect]
     Dosage: 5MG
     Route: 042

REACTIONS (2)
  - INCORRECT DOSE ADMINISTERED [None]
  - VEIN DISORDER [None]
